FAERS Safety Report 26218910 (Version 1)
Quarter: 2025Q4

REPORT INFORMATION
  Report Type: Spontaneous
  Country: US (occurrence: US)
  Receive Date: 20251231
  Receipt Date: 20251231
  Transmission Date: 20260118
  Serious: Yes (Death, Hospitalization)
  Sender: AMGEN
  Company Number: US-AMGEN-USASP2025254683

PATIENT
  Age: 84 Year
  Sex: Male

DRUGS (6)
  1. RITUXIMAB [Suspect]
     Active Substance: RITUXIMAB
     Indication: Anti-neutrophil cytoplasmic antibody positive vasculitis
     Dosage: UNK
     Route: 065
  2. ATORVASTATIN [Concomitant]
     Active Substance: ATORVASTATIN
  3. DILTIAZEM [Concomitant]
     Active Substance: DILTIAZEM
  4. HYDRALAZINE [Concomitant]
     Active Substance: HYDRALAZINE HYDROCHLORIDE
  5. PANTOPRAZOLE [Concomitant]
     Active Substance: PANTOPRAZOLE
  6. TAMSULOSIN [Concomitant]
     Active Substance: TAMSULOSIN

REACTIONS (8)
  - Death [Fatal]
  - Pulmonary oedema [Recovering/Resolving]
  - Respiratory failure [Unknown]
  - Clear cell renal cell carcinoma [Unknown]
  - Pleural effusion [Recovering/Resolving]
  - Toxic encephalopathy [Unknown]
  - Glomerulonephritis rapidly progressive [Unknown]
  - Off label use [Unknown]
